FAERS Safety Report 7576023-0 (Version None)
Quarter: 2011Q2

REPORT INFORMATION
  Report Type: 
  Country: None (occurrence: None)
  Receive Date: 20110628
  Receipt Date: 20110517
  Transmission Date: 20111010
  Serious: No
  Sender: FDA-Public Use
  Company Number: US-BAYER-2011-044031

PATIENT
  Age: 83 Year
  Sex: Male
  Weight: 73 kg

DRUGS (2)
  1. ALEVE (CAPLET) [Suspect]
     Indication: HEADACHE
     Dosage: 440 TO 660MG
     Route: 048
     Dates: start: 20110509
  2. VIMOVO [Concomitant]

REACTIONS (1)
  - NO ADVERSE EVENT [None]
